FAERS Safety Report 6436062-X (Version None)
Quarter: 2009Q4

REPORT INFORMATION
  Report Type: 
  Country: None (occurrence: None)
  Receive Date: 20091111
  Receipt Date: 20091104
  Transmission Date: 20100525
  Serious: Yes (Other)
  Sender: FDA-Public Use
  Company Number: US-ELI_LILLY_AND_COMPANY-US200911002407

PATIENT
  Sex: Female
  Weight: 81.633 kg

DRUGS (4)
  1. BYETTA [Suspect]
     Indication: TYPE 2 DIABETES MELLITUS
     Dosage: UNK, 2/D
     Route: 058
     Dates: start: 20050719, end: 20080101
  2. BYETTA [Suspect]
     Dosage: 5 UG, 2/D
     Route: 058
     Dates: start: 20080101, end: 20091104
  3. LISINOPRIL [Concomitant]
     Indication: HYPERTENSION
     Dosage: UNK, EACH MORNING
     Route: 048
  4. ASPIRIN [Concomitant]
     Dosage: 80 MG, EACH MORNING
     Route: 048

REACTIONS (7)
  - BACK PAIN [None]
  - BLOOD CHOLESTEROL INCREASED [None]
  - BLOOD CREATININE INCREASED [None]
  - BLOOD UREA INCREASED [None]
  - HYSTERECTOMY [None]
  - OSTEOPOROSIS [None]
  - SPINAL FRACTURE [None]
